FAERS Safety Report 20090349 (Version 1)
Quarter: 2021Q4

REPORT INFORMATION
  Report Type: Spontaneous
  Country: US (occurrence: None)
  Receive Date: 20211118
  Receipt Date: 20211118
  Transmission Date: 20220303
  Serious: Yes (Other)
  Sender: FDA-Public Use
  Company Number: None

PATIENT
  Age: 51 Year
  Sex: Female
  Weight: 85.5 kg

DRUGS (14)
  1. ZOLPIDEM TARTRATE ER [Suspect]
     Active Substance: ZOLPIDEM TARTRATE
     Indication: Insomnia
     Dosage: OTHER QUANTITY : 90 TABLET(S);?FREQUENCY : AT BEDTIME;?
     Route: 048
     Dates: start: 20211027, end: 20211118
  2. ZOLPIDEM TARTRATE ER [Suspect]
     Active Substance: ZOLPIDEM TARTRATE
  3. LAMICTAL [Concomitant]
  4. CYMBALTA [Concomitant]
     Active Substance: DULOXETINE HYDROCHLORIDE
  5. WELLBUTRIN XL [Concomitant]
  6. REXULTI [Concomitant]
     Active Substance: BREXPIPRAZOLE
  7. SYNTHROID [Concomitant]
  8. OLMASARTAN [Concomitant]
  9. TRAZODONE [Concomitant]
     Active Substance: TRAZODONE HYDROCHLORIDE
  10. CALCIUM/VITAMIN D [Concomitant]
  11. FISH OIL [Concomitant]
  12. GLUCOSAMIN [Concomitant]
  13. CHONDROYTIN [Concomitant]
  14. MULTIVITAMIN FOR SKIN AND NAILS [Concomitant]

REACTIONS (3)
  - Product substitution issue [None]
  - Therapeutic product effect decreased [None]
  - Product formulation issue [None]

NARRATIVE: CASE EVENT DATE: 20211105
